FAERS Safety Report 7931475-9 (Version None)
Quarter: 2011Q4

REPORT INFORMATION
  Report Type: 
  Country: None (occurrence: None)
  Receive Date: 20111121
  Receipt Date: 20111117
  Transmission Date: 20120403
  Serious: Yes (Hospitalization)
  Sender: FDA-Public Use
  Company Number: US-AMGEN-USACT2011058805

PATIENT
  Age: 67 Year
  Sex: Male

DRUGS (2)
  1. BLINDED PLACEBO [Suspect]
     Indication: CARDIAC FAILURE
     Dates: start: 20110427
  2. BLINDED DARBEPOETIN ALFA [Suspect]
     Indication: CARDIAC FAILURE
     Dates: start: 20110427

REACTIONS (2)
  - CARDIAC FAILURE [None]
  - RENAL FAILURE CHRONIC [None]
